FAERS Safety Report 22289061 (Version 2)
Quarter: 2023Q2

REPORT INFORMATION
  Report Type: Report from Study
  Country: CA (occurrence: CA)
  Receive Date: 20230505
  Receipt Date: 20230526
  Transmission Date: 20230722
  Serious: No
  Sender: FDA-Public Use
  Company Number: CA-UCBSA-2023002128

PATIENT
  Age: 70 Year
  Sex: Female

DRUGS (2)
  1. CERTOLIZUMAB PEGOL [Suspect]
     Active Substance: CERTOLIZUMAB PEGOL
     Indication: Rheumatoid arthritis
     Dosage: 400 MILLIGRAM, EV 2 WEEKS(QOW)
     Route: 058
     Dates: start: 20230110
  2. CERTOLIZUMAB PEGOL [Suspect]
     Active Substance: CERTOLIZUMAB PEGOL
     Dosage: 200 MILLIGRAM, EV 2 WEEKS(QOW)
     Route: 058
     Dates: end: 20230519

REACTIONS (8)
  - Dyspnoea [Unknown]
  - Injection site bruising [Unknown]
  - Skin disorder [Unknown]
  - Cough [Unknown]
  - Tenderness [Unknown]
  - Feeling hot [Unknown]
  - Skin discolouration [Unknown]
  - Device issue [Unknown]

NARRATIVE: CASE EVENT DATE: 20230101
